FAERS Safety Report 4458304-2 (Version None)
Quarter: 2004Q3

REPORT INFORMATION
  Report Type: 
  Country: None (occurrence: None)
  Receive Date: 20040917
  Receipt Date: 20040310
  Transmission Date: 20050211
  Serious: Yes (Hospitalization)
  Sender: FDA-Public Use
  Company Number: US-JNJFOC-20040103984

PATIENT
  Age: 49 Year
  Sex: Female
  Weight: 73.0291 kg

DRUGS (16)
  1. TOPAMAX [Suspect]
     Indication: BIPOLAR DISORDER
     Dosage: 50 MG, 2 IN 1 DAY ; 25 MG, IN 1 DAY  :   ORAL
     Route: 048
     Dates: start: 20031029
  2. TOPAMAX [Suspect]
     Indication: SCHIZOPHRENIA
     Dosage: 50 MG, 2 IN 1 DAY ; 25 MG, IN 1 DAY  :   ORAL
     Route: 048
     Dates: start: 20031029
  3. AVANDIA [Concomitant]
  4. FERROUS SULFATE TAB [Concomitant]
  5. LASIX [Concomitant]
  6. MAXIDE (DYAZIDE) TABLETS [Concomitant]
  7. GLUCOPHAGE (METFORMIN HYDROCHLORIDE) TABLETS [Concomitant]
  8. MONOPRIL (FOSINOPRIL SODIUM) TABLETS [Concomitant]
  9. NORVASC [Concomitant]
  10. RANITIDINE ^MUNDOGEN^ (RANITIDINE HYDROCHLORIDE) [Concomitant]
  11. HYDRALAZINE (HYDRALAZINE) TABLETS [Concomitant]
  12. ABILIFY (ARIPIPRAZOLE) TABLETS [Concomitant]
  13. MULTIVITAMIN (MULTIVITAMINS) [Concomitant]
  14. LIPITOR [Concomitant]
  15. NAPROXEN EC (NAPROXEN) TABLETS [Concomitant]
  16. VALPROIC ACID (VALPROIC ACID) SYRUP [Concomitant]

REACTIONS (1)
  - TOXIC EPIDERMAL NECROLYSIS [None]
